FAERS Safety Report 6837580-2 (Version None)
Quarter: 2010Q3

REPORT INFORMATION
  Report Type: 
  Country: None (occurrence: None)
  Receive Date: 20100713
  Receipt Date: 20070515
  Transmission Date: 20110219
  Serious: No
  Sender: FDA-Public Use
  Company Number: US-PFIZER INC-2007040174

PATIENT
  Sex: Male
  Weight: 106 kg

DRUGS (4)
  1. CHANTIX [Suspect]
     Indication: SMOKING CESSATION THERAPY
     Dates: start: 20070401
  2. ALTACE [Concomitant]
  3. ACETYLSALICYLIC ACID [Concomitant]
  4. VYTORIN [Concomitant]

REACTIONS (3)
  - FATIGUE [None]
  - SLEEP DISORDER [None]
  - SOMNOLENCE [None]
